FAERS Safety Report 8395109-4 (Version None)
Quarter: 2012Q2

REPORT INFORMATION
  Report Type: 
  Country: None (occurrence: None)
  Receive Date: 20120530
  Receipt Date: 20120525
  Transmission Date: 20120825
  Serious: Yes (Other)
  Sender: FDA-Public Use
  Company Number: US-PFIZER INC-2012127271

PATIENT
  Sex: Male

DRUGS (3)
  1. VICODIN [Concomitant]
     Indication: PAIN
     Dosage: UNK, AS NEEDED
  2. VIAGRA [Suspect]
     Dosage: 100 MG, AS NEEDED
     Route: 048
     Dates: start: 20111001
  3. IBUPROFEN [Concomitant]
     Indication: PAIN
     Dosage: 800 MG, AS NEEDED

REACTIONS (2)
  - SUTURE RUPTURE [None]
  - HERNIA [None]
